FAERS Safety Report 21512190 (Version 1)
Quarter: 2022Q4

REPORT INFORMATION
  Report Type: Spontaneous
  Country: US (occurrence: US)
  Receive Date: 20221027
  Receipt Date: 20221027
  Transmission Date: 20230113
  Serious: Yes (Hospitalization, Other)
  Sender: FDA-Public Use
  Company Number: US-SUN PHARMACEUTICAL INDUSTRIES LTD-2022R1-360221

PATIENT
  Age: 40 Year

DRUGS (1)
  1. CYCLOBENZAPRINE [Suspect]
     Active Substance: CYCLOBENZAPRINE
     Indication: Product used for unknown indication
     Dosage: 42 DOSAGE FORM
     Route: 065

REACTIONS (3)
  - Overdose [Unknown]
  - Rhabdomyolysis [Not Recovered/Not Resolved]
  - Suicide attempt [Unknown]
